FAERS Safety Report 8507259-X (Version None)
Quarter: 2012Q3

REPORT INFORMATION
  Report Type: 
  Country: None (occurrence: None)
  Receive Date: 20120712
  Receipt Date: 20120629
  Transmission Date: 20120928
  Serious: Yes (Hospitalization, Other)
  Sender: FDA-Public Use
  Company Number: JP-ROCHE-1076894

PATIENT
  Sex: Female
  Weight: 39 kg

DRUGS (19)
  1. LIMETHASON [Concomitant]
     Indication: RHEUMATOID ARTHRITIS
     Route: 042
     Dates: start: 20080610, end: 20080610
  2. ALFAROL [Concomitant]
     Indication: OSTEOPOROSIS
     Route: 048
  3. ACTEMRA [Suspect]
     Route: 041
     Dates: start: 20091130
  4. PREDNISOLONE [Suspect]
     Dosage: UNCERTAIN DOSAGE (LESS THAN 5MG)
     Route: 048
     Dates: start: 20100615, end: 20100705
  5. FOLIAMIN [Concomitant]
     Indication: PROPHYLAXIS
     Route: 048
  6. METHOTREXATE [Concomitant]
     Indication: RHEUMATOID ARTHRITIS
     Dosage: AMOUNT 2
     Route: 048
  7. FAMOTIDINE [Concomitant]
     Indication: PROPHYLAXIS
     Route: 048
  8. RISEDRONATE SODIUM [Concomitant]
     Indication: OSTEOPOROSIS
     Route: 048
  9. PROGRAF [Concomitant]
     Indication: RHEUMATOID ARTHRITIS
     Route: 048
     Dates: start: 20090509, end: 20091214
  10. PREDNISOLONE [Suspect]
     Dosage: UNCERTAIN DOSAGE (LESS THAN 5MG)
     Route: 048
     Dates: start: 20100223, end: 20100323
  11. PREDNISOLONE [Suspect]
     Dosage: UNCERTAIN DOSAGE (LESS THAN 5MG)
     Route: 048
     Dates: start: 20100706, end: 20100929
  12. ACTEMRA [Suspect]
     Indication: RHEUMATOID ARTHRITIS
     Route: 041
     Dates: start: 20080513, end: 20080610
  13. PREDNISOLONE [Suspect]
     Indication: RHEUMATOID ARTHRITIS
     Dosage: UNCERTAIN DOSAGE (LESS THAN 5MG)
     Route: 048
     Dates: start: 20091019, end: 20100705
  14. PREDNISOLONE [Suspect]
     Route: 048
     Dates: start: 20091019, end: 20100222
  15. LOXONIN [Concomitant]
     Indication: RHEUMATOID ARTHRITIS
     Route: 048
  16. ACTEMRA [Suspect]
     Route: 041
     Dates: start: 20090526, end: 20090623
  17. PREDNISOLONE [Suspect]
     Dosage: UNCERTAIN DOSAGE (LESS THAN 5MG)
     Route: 048
     Dates: start: 20100324, end: 20100614
  18. MUCOSTA [Concomitant]
     Indication: PROPHYLAXIS
     Route: 048
  19. HUMIRA [Concomitant]
     Indication: RHEUMATOID ARTHRITIS
     Dosage: DOSAGE IS UNCERTAIN.
     Route: 042
     Dates: start: 20080708, end: 20081125

REACTIONS (2)
  - JOINT INJURY [None]
  - FALL [None]
